FAERS Safety Report 17882628 (Version 1)
Quarter: 2020Q2

REPORT INFORMATION
  Report Type: Spontaneous
  Country: NL (occurrence: NL)
  Receive Date: 20200610
  Receipt Date: 20200610
  Transmission Date: 20200714
  Serious: Yes (Hospitalization, Other)
  Sender: FDA-Public Use
  Company Number: NL-GILEAD-2020-0471413

PATIENT
  Age: 45 Year
  Sex: Male

DRUGS (4)
  1. EMTRICITABINE/TENOFOVIR DF [Suspect]
     Active Substance: EMTRICITABINE
     Indication: PROPHYLAXIS
     Dosage: 1 DF, QD
     Route: 065
     Dates: start: 2019, end: 20200520
  2. DISULFIRAM. [Concomitant]
     Active Substance: DISULFIRAM
     Dosage: BRUISTABLET, 400 MG (MILLIGRAM)
  3. SERTRALINE [Concomitant]
     Active Substance: SERTRALINE HYDROCHLORIDE
     Dosage: TABLET, 50 MG (MILLIGRAM)
  4. QUETIAPINE. [Concomitant]
     Active Substance: QUETIAPINE
     Dosage: FILMOMHULDE TABLET, 25 MG (MILLIGRAM)

REACTIONS (3)
  - Blood creatine phosphokinase increased [Unknown]
  - Syncope [Unknown]
  - Myalgia [Unknown]

NARRATIVE: CASE EVENT DATE: 20200520
